FAERS Safety Report 6804863-1 (Version None)
Quarter: 2010Q2

REPORT INFORMATION
  Report Type: 
  Country: None (occurrence: None)
  Receive Date: 20100628
  Receipt Date: 20070531
  Transmission Date: 20101027
  Serious: No
  Sender: FDA-Public Use
  Company Number: US-PFIZER INC-2007044902

PATIENT
  Sex: Male

DRUGS (1)
  1. GENOTROPIN [Suspect]
     Indication: GROWTH HORMONE DEFICIENCY
     Dosage: DAILY
     Dates: start: 20040801, end: 20070501

REACTIONS (3)
  - ARTHRALGIA [None]
  - HEADACHE [None]
  - IRRITABILITY [None]
